FAERS Safety Report 22036607 (Version 1)
Quarter: 2023Q1

REPORT INFORMATION
  Report Type: Spontaneous
  Country: US (occurrence: None)
  Receive Date: 20230223
  Receipt Date: 20230223
  Transmission Date: 20230417
  Serious: No
  Sender: FDA-Public Use
  Company Number: None

PATIENT
  Sex: Female

DRUGS (2)
  1. DEVICE [Suspect]
     Active Substance: DEVICE
     Indication: Pulmonary arterial hypertension
     Dosage: OTHER QUANTITY : 38MG/KG/MIN;?OTHER FREQUENCY : CONTINUOUS;?
     Route: 042
     Dates: start: 202301
  2. REMODULIN [Suspect]
     Active Substance: TREPROSTINIL
     Route: 042
     Dates: start: 202301

REACTIONS (4)
  - Device malfunction [None]
  - Diarrhoea [None]
  - Swelling [None]
  - Taste disorder [None]
